FAERS Safety Report 4682943-7 (Version None)
Quarter: 2005Q2

REPORT INFORMATION
  Report Type: 
  Country: None (occurrence: None)
  Receive Date: 20050602
  Receipt Date: 20050503
  Transmission Date: 20051028
  Serious: No
  Sender: FDA-Public Use
  Company Number: USA050393667

PATIENT
  Age: 74 Year
  Sex: Female
  Weight: 46 kg

DRUGS (6)
  1. CYMBALTA [Suspect]
     Indication: DIABETIC NEUROPATHY
     Dosage: 60 MG AT BEDTIME
     Dates: start: 20050201
  2. KLONOPIN [Concomitant]
  3. MIACALCIN (CALCITONIN) [Concomitant]
  4. PERCOCET [Concomitant]
  5. METHADONE HCL [Concomitant]
  6. LORAZEPAM [Concomitant]

REACTIONS (10)
  - ABDOMINAL PAIN UPPER [None]
  - CONSTIPATION [None]
  - CRYING [None]
  - DIFFICULTY IN WALKING [None]
  - DRUG INEFFECTIVE [None]
  - DYSPEPSIA [None]
  - HYPOAESTHESIA [None]
  - INCREASED APPETITE [None]
  - PAIN IN EXTREMITY [None]
  - WEIGHT INCREASED [None]
